FAERS Safety Report 24939091 (Version 1)
Quarter: 2025Q1

REPORT INFORMATION
  Report Type: Spontaneous
  Country: US (occurrence: US)
  Receive Date: 20250206
  Receipt Date: 20250206
  Transmission Date: 20250408
  Serious: Yes (Other)
  Sender: PERRIGO
  Company Number: US-PERRIGO-25US001660

PATIENT

DRUGS (1)
  1. OXYCODONE HYDROCHLORIDE\OXYCODONE TEREPHTHALATE [Suspect]
     Active Substance: OXYCODONE HYDROCHLORIDE\OXYCODONE TEREPHTHALATE
     Indication: Nasopharyngitis
     Route: 045

REACTIONS (4)
  - Drug dependence [Unknown]
  - Rebound nasal congestion [Unknown]
  - Incorrect product administration duration [Unknown]
  - Intentional product use issue [Unknown]
